FAERS Safety Report 23614827 (Version 1)
Quarter: 2024Q1

REPORT INFORMATION
  Report Type: Spontaneous
  Country: JP (occurrence: JP)
  Receive Date: 20240311
  Receipt Date: 20240311
  Transmission Date: 20240409
  Serious: Yes (Hospitalization, Other)
  Sender: FDA-Public Use
  Company Number: JP-LEO Pharma-366732

PATIENT
  Sex: Male

DRUGS (1)
  1. ENSTILAR [Suspect]
     Active Substance: BETAMETHASONE DIPROPIONATE\CALCIPOTRIENE HYDRATE
     Indication: Psoriasis
     Dosage: USING DOVOBET FOAM FOR ABOUT 10 YEARS (DETAILS UNKNOWN. CANNOT BE TRACED DUE TO PAPER MEDICAL RECORD

REACTIONS (2)
  - Pneumonia [Unknown]
  - Psoriasis [Recovering/Resolving]
